FAERS Safety Report 4791755-5 (Version None)
Quarter: 2005Q4

REPORT INFORMATION
  Report Type: 
  Country: None (occurrence: None)
  Receive Date: 20051007
  Receipt Date: 20050915
  Transmission Date: 20060501
  Serious: Yes (Hospitalization, Other)
  Sender: FDA-Public Use
  Company Number: PHFR2005GB03075

PATIENT
  Age: 31 Year
  Sex: Female
  Weight: 56 kg

DRUGS (4)
  1. TEGRETOL [Suspect]
     Indication: EPILEPSY
     Dosage: 2X 200MG BID
     Route: 065
     Dates: start: 20031111
  2. FOLIC ACID [Concomitant]
     Dosage: 5MG/DAY
     Route: 065
     Dates: start: 20030311
  3. INSULIN GLARGINE [Concomitant]
     Indication: DIABETES MELLITUS
     Dosage: 240MG/DAY
     Route: 065
  4. INSULIN HUMAN [Concomitant]
     Indication: DIABETES MELLITUS
     Route: 065

REACTIONS (3)
  - CAESAREAN SECTION [None]
  - DRUG EXPOSURE DURING PREGNANCY [None]
  - PLACENTA PRAEVIA [None]
